FAERS Safety Report 9927474 (Version 1)
Quarter: 2014Q1

REPORT INFORMATION
  Report Type: Other
  Country: GB (occurrence: GB)
  Receive Date: 20140227
  Receipt Date: 20140227
  Transmission Date: 20141002
  Serious: Yes (Other)
  Sender: FDA-Public Use
  Company Number: GB-LUPIN PHARMACEUTICALS INC.-E2B_00001732

PATIENT
  Age: 39 Year
  Sex: Female

DRUGS (3)
  1. SERTRALINE [Suspect]
     Indication: ANXIETY
     Route: 065
     Dates: start: 201305
  2. SPIRONOLACTONE [Interacting]
     Indication: ACNE
     Route: 048
     Dates: start: 20131016, end: 20131212
  3. SPIRONOLACTONE [Interacting]
     Indication: ACNE
     Route: 048
     Dates: start: 20131213, end: 201312

REACTIONS (3)
  - Anxiety [Recovered/Resolved]
  - Palpitations [Recovered/Resolved]
  - Inhibitory drug interaction [Unknown]
